FAERS Safety Report 16940811 (Version 1)
Quarter: 2019Q4

REPORT INFORMATION
  Report Type: Spontaneous
  Country: BE (occurrence: BE)
  Receive Date: 20191021
  Receipt Date: 20191021
  Transmission Date: 20200122
  Serious: Yes (Other)
  Sender: FDA-Public Use
  Company Number: BE-DENTSPLY-2019SCDP000574

PATIENT

DRUGS (1)
  1. PRILOCAINE [Suspect]
     Active Substance: PRILOCAINE
     Indication: SPINAL ANAESTHESIA
     Dosage: 50.25+/-10.17 MG

REACTIONS (4)
  - Urinary retention [Unknown]
  - Bradycardia [Unknown]
  - Neurological symptom [Unknown]
  - Hypotension [Unknown]
